FAERS Safety Report 24804809 (Version 6)
Quarter: 2025Q3

REPORT INFORMATION
  Report Type: Spontaneous
  Country: EU (occurrence: EU)
  Receive Date: 20250103
  Receipt Date: 20250731
  Transmission Date: 20251021
  Serious: Yes (Hospitalization)
  Sender: Unknown Manufacturer
  Company Number: EU-PPDUS-2024RHM000734

PATIENT

DRUGS (9)
  1. IMCIVREE [Suspect]
     Active Substance: SETMELANOTIDE
     Indication: Laurence-Moon-Bardet-Biedl syndrome
     Dosage: .5 MILLIGRAM, QD
     Route: 058
     Dates: start: 20241218, end: 20241219
  2. IMCIVREE [Suspect]
     Active Substance: SETMELANOTIDE
     Dosage: 0.5 ML INSTEAD OF 0.5 MG, 5 MILLIGRAM, QD
     Dates: start: 20241220, end: 20241222
  3. IMCIVREE [Suspect]
     Active Substance: SETMELANOTIDE
     Dosage: .5 MILLIGRAM, QD
     Route: 058
     Dates: start: 20241226
  4. IMCIVREE [Suspect]
     Active Substance: SETMELANOTIDE
     Dosage: 1.5 MILLIGRAM, QD
     Route: 058
     Dates: start: 20250129
  5. IMCIVREE [Suspect]
     Active Substance: SETMELANOTIDE
     Dosage: 2 MILLIGRAM, QD
     Route: 058
     Dates: start: 20250201
  6. IMCIVREE [Suspect]
     Active Substance: SETMELANOTIDE
     Dosage: 0.25 MILLILITER, QD
     Route: 058
  7. IMCIVREE [Suspect]
     Active Substance: SETMELANOTIDE
     Dosage: 0.3 MILLILITER, QD
     Route: 058
     Dates: start: 20250710
  8. FLUTICASONE FUROATE [Concomitant]
     Active Substance: FLUTICASONE FUROATE
     Indication: Rhinitis allergic
     Route: 065
  9. BETAMETHASONE [Concomitant]
     Active Substance: BETAMETHASONE
     Indication: Keloid scar

REACTIONS (9)
  - Gastrointestinal disorder [Recovered/Resolved]
  - Accidental overdose [Recovered/Resolved]
  - Medication error [Recovered/Resolved]
  - Visual acuity reduced [Recovering/Resolving]
  - Abnormal behaviour [Unknown]
  - Blood pressure diastolic increased [Unknown]
  - Agitation [Unknown]
  - Off label use [Recovered/Resolved]
  - Abdominal pain [Unknown]

NARRATIVE: CASE EVENT DATE: 20241221
